FAERS Safety Report 25457721 (Version 1)
Quarter: 2025Q2

REPORT INFORMATION
  Report Type: Spontaneous
  Country: US (occurrence: US)
  Receive Date: 20250619
  Receipt Date: 20250619
  Transmission Date: 20250716
  Serious: Yes (Other)
  Sender: AMGEN
  Company Number: US-AMGEN-USASP2025116642

PATIENT

DRUGS (1)
  1. PREDNISONE [Suspect]
     Active Substance: PREDNISONE
     Indication: Asthma
     Route: 048

REACTIONS (14)
  - Pseudomonas infection [Unknown]
  - Treatment failure [Unknown]
  - Respiratory tract infection [Unknown]
  - Viral infection [Unknown]
  - Haemophilus infection [Unknown]
  - Moraxella infection [Unknown]
  - Staphylococcal infection [Unknown]
  - Streptococcal infection [Unknown]
  - Wheezing [Unknown]
  - Bacterial infection [Unknown]
  - Coinfection [Unknown]
  - Rhinovirus infection [Unknown]
  - Adenovirus infection [Unknown]
  - Metapneumovirus infection [Unknown]
